FAERS Safety Report 22370900 (Version 2)
Quarter: 2024Q2

REPORT INFORMATION
  Report Type: Report from Study
  Country: US (occurrence: US)
  Receive Date: 20230526
  Receipt Date: 20240606
  Transmission Date: 20240715
  Serious: No
  Sender: FDA-Public Use
  Company Number: US-002147023-NVSC2023US118957

PATIENT
  Sex: Female

DRUGS (1)
  1. KISQALI [Suspect]
     Active Substance: RIBOCICLIB
     Indication: Product used for unknown indication
     Dosage: 600 MG, QD (21 DAYS ON 7 OFF)
     Route: 048
     Dates: start: 20230420

REACTIONS (3)
  - Nausea [Unknown]
  - Headache [Unknown]
  - Product dose omission issue [Unknown]
